FAERS Safety Report 23378985 (Version 1)
Quarter: 2024Q1

REPORT INFORMATION
  Report Type: Spontaneous
  Country: US (occurrence: None)
  Receive Date: 20240108
  Receipt Date: 20240108
  Transmission Date: 20240410
  Serious: Yes (Hospitalization, Other)
  Sender: FDA-Public Use
  Company Number: None

PATIENT
  Age: 46 Year
  Sex: Female
  Weight: 78.8 kg

DRUGS (9)
  1. QELBREE [Suspect]
     Active Substance: VILOXAZINE HYDROCHLORIDE
     Indication: Attention deficit hyperactivity disorder
     Dosage: FREQUENCY : DAILY;?
     Route: 048
     Dates: start: 20230430, end: 20230510
  2. WELLBUTRIN XL [Concomitant]
     Active Substance: BUPROPION HYDROCHLORIDE
  3. LEVOTHYROXINE (LEVOXYL) [Concomitant]
  4. LEVOCETIRIZINE (XYZAL) [Concomitant]
  5. OLOPATADINE (PATADAY) [Concomitant]
  6. SUPER B COMPLEX VITAMINS [Concomitant]
  7. VITAMIN D [Concomitant]
  8. AMOXICILLIN [Concomitant]
     Active Substance: AMOXICILLIN
  9. GUAIFENESIN [Concomitant]

REACTIONS (9)
  - Nausea [None]
  - Headache [None]
  - Migraine [None]
  - Photophobia [None]
  - Vision blurred [None]
  - Vomiting [None]
  - Blood pressure increased [None]
  - Retching [None]
  - Therapy cessation [None]

NARRATIVE: CASE EVENT DATE: 20230510
